FAERS Safety Report 5203581-3 (Version None)
Quarter: 2007Q1

REPORT INFORMATION
  Report Type: 
  Country: None (occurrence: None)
  Receive Date: 20070105
  Receipt Date: 20061221
  Transmission Date: 20070707
  Serious: Yes (Other)
  Sender: FDA-Public Use
  Company Number: GXKR2006GB08464

PATIENT
  Age: 70 Year
  Sex: Male

DRUGS (1)
  1. DOXAZOSIN MESYLATE [Suspect]
     Indication: HYPERTENSION
     Dosage: 4MG/DAY, ORAL
     Route: 048

REACTIONS (3)
  - FLOPPY IRIS SYNDROME [None]
  - MIOSIS [None]
  - POST PROCEDURAL COMPLICATION [None]
